FAERS Safety Report 18528573 (Version 2)
Quarter: 2021Q1

REPORT INFORMATION
  Report Type: Spontaneous
  Country: US (occurrence: US)
  Receive Date: 20201120
  Receipt Date: 20210205
  Transmission Date: 20210419
  Serious: Yes (Hospitalization, Other)
  Sender: FDA-Public Use
  Company Number: US-PFIZER INC-2020455926

PATIENT
  Age: 24 Year
  Sex: Male
  Weight: 121.54 kg

DRUGS (6)
  1. XANAX [Suspect]
     Active Substance: ALPRAZOLAM
     Indication: INSOMNIA
     Dosage: 10 MG, 2X/DAY
  2. OXYCODONE [Suspect]
     Active Substance: OXYCODONE
     Indication: FACE INJURY
     Dosage: 10 MG (6, DIALY)
  3. OXYCONTIN [Suspect]
     Active Substance: OXYCODONE HYDROCHLORIDE
     Indication: NECK INJURY
     Dosage: 10 MG, 4X/DAY
  4. OXYCONTIN [Suspect]
     Active Substance: OXYCODONE HYDROCHLORIDE
     Indication: FACE INJURY
  5. OXYCONTIN [Suspect]
     Active Substance: OXYCODONE HYDROCHLORIDE
     Indication: BACK INJURY
  6. VALIUM [Suspect]
     Active Substance: DIAZEPAM
     Indication: RESTLESSNESS
     Dosage: 10 MG, 2X/DAY

REACTIONS (7)
  - Back injury [Unknown]
  - Off label use [Unknown]
  - Overdose [Not Recovered/Not Resolved]
  - Amnesia [Not Recovered/Not Resolved]
  - Loss of personal independence in daily activities [Not Recovered/Not Resolved]
  - Dementia [Not Recovered/Not Resolved]
  - Jaw fracture [Not Recovered/Not Resolved]

NARRATIVE: CASE EVENT DATE: 2003
